FAERS Safety Report 15557071 (Version 1)
Quarter: 2018Q4

REPORT INFORMATION
  Report Type: Spontaneous
  Country: RU (occurrence: RU)
  Receive Date: 20181026
  Receipt Date: 20181026
  Transmission Date: 20190205
  Serious: Yes (Death, Hospitalization)
  Sender: FDA-Public Use
  Company Number: PHHY2018RU139313

PATIENT
  Age: 62 Year
  Sex: Female

DRUGS (3)
  1. ESSLIVER FORTE [Concomitant]
     Indication: PSORIASIS
     Dosage: UNK
     Route: 048
  2. METHOTREXATE (METHOTREXATE SODIUM) [Suspect]
     Active Substance: METHOTREXATE SODIUM
     Indication: PRODUCT USED FOR UNKNOWN INDICATION
     Dosage: 1 DF, QD
     Route: 065
  3. ESSLIVER FORTE [Concomitant]
     Indication: HEPATOMEGALY

REACTIONS (2)
  - Secondary immunodeficiency [Fatal]
  - Stevens-Johnson syndrome [Fatal]

NARRATIVE: CASE EVENT DATE: 20180105
